FAERS Safety Report 10255231 (Version 1)
Quarter: 2014Q2

REPORT INFORMATION
  Report Type: Spontaneous
  Country: IT (occurrence: IT)
  Receive Date: 20140624
  Receipt Date: 20140624
  Transmission Date: 20141212
  Serious: Yes (Hospitalization)
  Sender: FDA-Public Use
  Company Number: IT-SA-2014SA081401

PATIENT
  Age: 46 Year
  Sex: Female

DRUGS (3)
  1. STILNOX [Suspect]
     Indication: SUICIDE ATTEMPT
     Dosage: 29 DOSAGE UNIT, TOTAL
     Route: 048
     Dates: start: 20140608, end: 20140608
  2. VENLAFAXINE [Suspect]
     Indication: SUICIDE ATTEMPT
     Route: 048
     Dates: start: 20140608, end: 20140608
  3. FELISON [Suspect]
     Indication: SUICIDE ATTEMPT
     Dosage: 14 DOSAGE UNIT, TOTAL
     Route: 048
     Dates: start: 20140608, end: 20140608

REACTIONS (5)
  - Bradykinesia [Recovering/Resolving]
  - Bradyphrenia [Recovering/Resolving]
  - Apraxia [Recovering/Resolving]
  - Hypotension [Recovering/Resolving]
  - Drug abuse [Unknown]
